FAERS Safety Report 5394915-8 (Version None)
Quarter: 2007Q3

REPORT INFORMATION
  Report Type: 
  Country: None (occurrence: None)
  Receive Date: 20070720
  Receipt Date: 20070705
  Transmission Date: 20080115
  Serious: Yes (Other)
  Sender: FDA-Public Use
  Company Number: PHBS2007JP11587

PATIENT

DRUGS (1)
  1. VISUDYNE [Suspect]
     Dates: start: 20070307, end: 20070307

REACTIONS (1)
  - ARRHYTHMIA [None]
